FAERS Safety Report 7190453-0 (Version None)
Quarter: 2010Q4

REPORT INFORMATION
  Report Type: 
  Country: None (occurrence: None)
  Receive Date: 20101223
  Receipt Date: 20101220
  Transmission Date: 20110411
  Serious: Yes (Death, Hospitalization)
  Sender: FDA-Public Use
  Company Number: MX-SANOFI-AVENTIS-2010SA076926

PATIENT
  Age: 48 Year
  Sex: Male

DRUGS (2)
  1. LANTUS [Suspect]
     Indication: TYPE 2 DIABETES MELLITUS
     Route: 058
     Dates: start: 20050101, end: 20100101
  2. APROVEL [Suspect]
     Route: 048
     Dates: start: 20070101, end: 20100101

REACTIONS (2)
  - FEMUR FRACTURE [None]
  - MYOCARDIAL INFARCTION [None]
